FAERS Safety Report 20930219 (Version 1)
Quarter: 2022Q2

REPORT INFORMATION
  Report Type: Spontaneous
  Country: IE (occurrence: IE)
  Receive Date: 20220608
  Receipt Date: 20220608
  Transmission Date: 20220721
  Serious: Yes (Other)
  Sender: FDA-Public Use
  Company Number: IE-TEVA-2022-IE-2044004

PATIENT
  Age: 56 Year
  Sex: Female

DRUGS (2)
  1. ZOLEDRONIC ACID [Suspect]
     Active Substance: ZOLEDRONIC ACID
     Indication: Osteoporosis
     Dosage: RECEIVED FOR 3 YEARS; AFTER 7 MONTHS FROM THE LAST INJECTION OF DENOSUMAB
     Route: 042
  2. DENOSUMAB [Suspect]
     Active Substance: DENOSUMAB
     Indication: Osteoporosis
     Route: 065

REACTIONS (3)
  - Rebound effect [Unknown]
  - Bone loss [Unknown]
  - Drug ineffective [Unknown]
